FAERS Safety Report 7595608-9 (Version None)
Quarter: 2011Q3

REPORT INFORMATION
  Report Type: 
  Country: None (occurrence: None)
  Receive Date: 20110707
  Receipt Date: 20110628
  Transmission Date: 20111222
  Serious: Yes (Life-Threatening)
  Sender: FDA-Public Use
  Company Number: JP-GLAXOSMITHKLINE-B0724776A

PATIENT
  Sex: Male
  Weight: 58 kg

DRUGS (5)
  1. CLEANAL [Concomitant]
     Indication: EMPHYSEMA
     Dosage: 800MG PER DAY
     Route: 048
     Dates: end: 20100918
  2. MUCOSOLVAN [Concomitant]
     Indication: EMPHYSEMA
     Dosage: 30MG PER DAY
     Route: 048
     Dates: end: 20100918
  3. SERETIDE (50MCG/250MCG) [Suspect]
     Indication: EMPHYSEMA
     Dosage: 500MCG PER DAY
     Route: 055
     Dates: start: 20090907, end: 20100918
  4. SPIRIVA [Concomitant]
     Indication: EMPHYSEMA
     Dosage: 18MCG PER DAY
     Route: 055
     Dates: end: 20100918
  5. UNIPHYL [Concomitant]
     Indication: EMPHYSEMA
     Dosage: 400MG PER DAY
     Route: 048
     Dates: end: 20100918

REACTIONS (2)
  - PROSTATE CANCER [None]
  - METASTASES TO BONE [None]
